FAERS Safety Report 22523698 (Version 2)
Quarter: 2023Q2

REPORT INFORMATION
  Report Type: Spontaneous
  Country: PL (occurrence: PL)
  Receive Date: 20230606
  Receipt Date: 20230622
  Transmission Date: 20230721
  Serious: Yes (Hospitalization)
  Sender: FDA-Public Use
  Company Number: PL-SA-SAC20230605001308

PATIENT
  Age: 67 Year
  Sex: Male
  Weight: 79 kg

DRUGS (13)
  1. CERDELGA [Suspect]
     Active Substance: ELIGLUSTAT
     Indication: Gaucher^s disease
     Dosage: 2X84MG, BID
     Route: 048
     Dates: start: 20230421
  2. DESFERAL [Suspect]
     Active Substance: DEFEROXAMINE MESYLATE
     Indication: Iron overload
     Dosage: 20MG/KG B.W.
     Route: 042
     Dates: start: 20230218
  3. DESFERAL [Suspect]
     Active Substance: DEFEROXAMINE MESYLATE
     Dosage: MINIMUM DOSE OF 20MG/KG B.W
     Route: 042
     Dates: end: 20230518
  4. DAPAGLIFLOZIN [Concomitant]
     Active Substance: DAPAGLIFLOZIN
     Indication: Type 2 diabetes mellitus
     Dosage: 1X1 TABL IN THE MORNING
  5. DAPAGLIFLOZIN [Concomitant]
     Active Substance: DAPAGLIFLOZIN
     Indication: Chronic kidney disease
  6. FOLIC ACID [Concomitant]
     Active Substance: FOLIC ACID
     Dosage: 1X1 TABL. MORNING
     Route: 048
  7. BENZOYL PEROXIDE [Concomitant]
     Active Substance: BENZOYL PEROXIDE
     Indication: Chronic obstructive pulmonary disease
     Dosage: 2X2 INHALATION DOSES
  8. METOPROLOL [Concomitant]
     Active Substance: METOPROLOL
     Dosage: 50 MG, QD
  9. OLODATEROL HYDROCHLORIDE\TIOTROPIUM BROMIDE MONOHYDRATE [Concomitant]
     Active Substance: OLODATEROL HYDROCHLORIDE\TIOTROPIUM BROMIDE MONOHYDRATE
     Indication: Chronic obstructive pulmonary disease
     Dosage: 2 DF, QD
  10. METFORMIN HYDROCHLORIDE [Concomitant]
     Active Substance: METFORMIN HYDROCHLORIDE
     Indication: Type 2 diabetes mellitus
     Dosage: 2X1 TABL.
     Route: 048
  11. METOPROLOL SUCCINATE [Concomitant]
     Active Substance: METOPROLOL SUCCINATE
     Dosage: 1 DF, QD
     Route: 048
  12. DEVIKAP [Concomitant]
     Indication: Vitamin D deficiency
     Dosage: 8 DF, QD
     Route: 048
  13. CO VALSACOR [Concomitant]
     Indication: Hypertension
     Dosage: 1X1 TABL MORNING

REACTIONS (9)
  - Joint swelling [Recovered/Resolved]
  - Erythema [Recovered/Resolved]
  - Pyrexia [Recovered/Resolved]
  - Inflammatory marker increased [Recovered/Resolved]
  - Arthritis [Recovered/Resolved]
  - Gout [Recovered/Resolved]
  - Pain [Recovered/Resolved]
  - Inflammation [Recovered/Resolved]
  - Arthralgia [Recovered/Resolved]

NARRATIVE: CASE EVENT DATE: 20230427
